FAERS Safety Report 9336692 (Version 1)
Quarter: 2013Q2

REPORT INFORMATION
  Report Type: Report from Study
  Country: US (occurrence: US)
  Receive Date: 20130607
  Receipt Date: 20130607
  Transmission Date: 20140414
  Serious: Yes (Other)
  Sender: FDA-Public Use
  Company Number: PHEH2013US012306

PATIENT
  Sex: Female

DRUGS (1)
  1. GLEEVEC [Suspect]
     Indication: SOFT TISSUE CANCER
     Dosage: 400 MG, DAILY
     Route: 048
     Dates: start: 201212

REACTIONS (2)
  - Sarcoidosis [Unknown]
  - Nausea [Recovering/Resolving]
